FAERS Safety Report 16996131 (Version 1)
Quarter: 2019Q4

REPORT INFORMATION
  Report Type: Report from Study
  Country: BE (occurrence: BE)
  Receive Date: 20191105
  Receipt Date: 20191105
  Transmission Date: 20200122
  Serious: Yes (Death, Hospitalization)
  Sender: FDA-Public Use
  Company Number: BE-PFIZER INC-2019477092

PATIENT
  Age: 72 Year
  Sex: Male
  Weight: 77.9 kg

DRUGS (22)
  1. VITAPORS [Concomitant]
  2. DAFALGAN [Concomitant]
     Active Substance: ACETAMINOPHEN
  3. ATROPINE. [Concomitant]
     Active Substance: ATROPINE
  4. EMCONCOR [Concomitant]
     Active Substance: BISOPROLOL FUMARATE
  5. NUTROF TOTAL [Concomitant]
  6. IMODIUM [Concomitant]
     Active Substance: LOPERAMIDE HYDROCHLORIDE
  7. TERRAMYCINE [OXYTETRACYCLINE HYDROCHLORIDE] [Concomitant]
  8. 5-FLUOROURACIL [FLUOROURACIL] [Suspect]
     Active Substance: FLUOROURACIL
     Indication: COLORECTAL CANCER METASTATIC
     Dosage: 800 MG, FORTNIGHTLY
     Route: 040
     Dates: start: 20170630
  9. ALOXI [Concomitant]
     Active Substance: PALONOSETRON HYDROCHLORIDE
  10. NASUMEL [Concomitant]
  11. NEULASTA [Concomitant]
     Active Substance: PEGFILGRASTIM
  12. LASIX [Concomitant]
     Active Substance: FUROSEMIDE
  13. ARCOXIA [Concomitant]
     Active Substance: ETORICOXIB
  14. XANAX [Concomitant]
     Active Substance: ALPRAZOLAM
  15. THEALOZ DUO [Concomitant]
  16. PRIMPERAN [Concomitant]
     Active Substance: METOCLOPRAMIDE HYDROCHLORIDE
  17. MOVICOL [Concomitant]
     Active Substance: POLYETHYLENE GLYCOL 3350\POTASSIUM CHLORIDE\SODIUM BICARBONATE\SODIUM CHLORIDE
  18. IRINOTECAN HCL [Suspect]
     Active Substance: IRINOTECAN HYDROCHLORIDE
     Indication: COLORECTAL CANCER METASTATIC
     Dosage: 285 MG, FORTNIGHTLY
     Route: 042
     Dates: start: 20170630
  19. 5-FLUOROURACIL [FLUOROURACIL] [Suspect]
     Active Substance: FLUOROURACIL
     Dosage: 3414 MG, FORTNIGHTY
     Route: 040
  20. LEUCOVORIN [FOLINIC ACID] [Suspect]
     Active Substance: LEUCOVORIN
     Indication: COLORECTAL CANCER METASTATIC
     Dosage: 759 MG, FORTNIGHTLY
     Route: 042
     Dates: start: 20170630
  21. ZYLORIC [Concomitant]
     Active Substance: ALLOPURINOL
  22. SOLU-MEDROL [Concomitant]
     Active Substance: METHYLPREDNISOLONE SODIUM SUCCINATE

REACTIONS (2)
  - Endocarditis [Fatal]
  - Gastrointestinal inflammation [Recovered/Resolved]

NARRATIVE: CASE EVENT DATE: 20171113
